FAERS Safety Report 4455794-6 (Version None)
Quarter: 2004Q3

REPORT INFORMATION
  Report Type: 
  Country: None (occurrence: None)
  Receive Date: 20040917
  Receipt Date: 20040903
  Transmission Date: 20050211
  Serious: Yes (Hospitalization, Disabling)
  Sender: FDA-Public Use
  Company Number: 04P-151-0272723-00

PATIENT
  Age: 37 Year
  Sex: Female

DRUGS (6)
  1. NORVIR [Suspect]
     Indication: HIV INFECTION
     Dosage: 100 MG, 1 IN 1 D, PER ORAL
     Route: 048
     Dates: start: 20030101
  2. ATAZANVIR [Suspect]
     Indication: HIV INFECTION
     Dosage: 150 MG, 2 IN 1 D, PER ORAL
     Route: 048
     Dates: start: 20030101
  3. ABACAVIR SULFATE [Suspect]
     Indication: HIV INFECTION
     Dosage: 300 MG, 2 IN 1 D, PER ORAL
     Route: 048
     Dates: start: 20030101
  4. DIDANOSINE [Suspect]
     Indication: HIV INFECTION
     Dosage: 400 MG, 1 IN 1 D, PER ORAL
     Route: 048
     Dates: start: 20030101
  5. AMITRIPTYLINE HYDROCHLORIDE [Concomitant]
  6. ATROPINE SULFATE [Concomitant]

REACTIONS (2)
  - HAEMOPTYSIS [None]
  - LIPODYSTROPHY ACQUIRED [None]
